FAERS Safety Report 4517164-1 (Version None)
Quarter: 2005Q1

REPORT INFORMATION
  Report Type: 
  Country: None (occurrence: None)
  Receive Date: 20041005
  Receipt Date: 20040708
  Transmission Date: 20050727
  Serious: Yes (Other)
  Sender: FDA-Public Use
  Company Number: US-JNJFOC-20040606296

PATIENT
  Sex: Female
  Weight: 58.9676 kg

DRUGS (1)
  1. ORAL CONTRACEPTIVE NOS (ORAL CONTRACEPTIVE NOS) TABLETS [Suspect]
     Dosage: 1 DOSE(S), 1 IN 1 DAY, ORAL
     Route: 048

REACTIONS (1)
  - DEEP VEIN THROMBOSIS [None]
